FAERS Safety Report 8358407-6 (Version None)
Quarter: 2012Q2

REPORT INFORMATION
  Report Type: 
  Country: None (occurrence: None)
  Receive Date: 20120514
  Receipt Date: 20081107
  Transmission Date: 20120825
  Serious: No
  Sender: FDA-Public Use
  Company Number: US-TEVA-2008000628

PATIENT
  Sex: Male
  Weight: 151.18 kg

DRUGS (2)
  1. COREG CR [Concomitant]
     Indication: CARDIAC FAILURE CONGESTIVE
     Dosage: 40 MILLIGRAM;
     Route: 048
  2. TREANDA [Suspect]
     Indication: NON-HODGKIN'S LYMPHOMA
     Route: 042
     Dates: start: 20081001

REACTIONS (4)
  - ABDOMINAL DISTENSION [None]
  - DYSPEPSIA [None]
  - FLATULENCE [None]
  - DIARRHOEA [None]
